FAERS Safety Report 9130501 (Version 1)
Quarter: 2013Q1

REPORT INFORMATION
  Report Type: Spontaneous
  Country: US (occurrence: US)
  Receive Date: 20130301
  Receipt Date: 20130301
  Transmission Date: 20140127
  Serious: No
  Sender: FDA-Public Use
  Company Number: US-009507513-1302USA011816

PATIENT
  Age: 68 Year
  Sex: Male

DRUGS (6)
  1. JANUVIA [Suspect]
     Indication: DIABETES MELLITUS
     Dosage: 100 MG, QD
     Route: 048
     Dates: start: 201202, end: 20130216
  2. METFORMIN [Concomitant]
  3. LYRICA [Concomitant]
  4. LOPRESSOR [Concomitant]
  5. OMEPRAZOLE [Concomitant]
  6. NIASPAN [Concomitant]

REACTIONS (1)
  - Diarrhoea [Recovered/Resolved]
